FAERS Safety Report 6501654-6 (Version None)
Quarter: 2009Q4

REPORT INFORMATION
  Report Type: 
  Country: None (occurrence: None)
  Receive Date: 20091127
  Receipt Date: 20081007
  Transmission Date: 20100525
  Serious: Yes (Life-Threatening, Hospitalization, Disabling, Other)
  Sender: FDA-Public Use
  Company Number: WAES 0809USA03564

PATIENT
  Age: 79 Year
  Sex: Female
  Weight: 43.0917 kg

DRUGS (5)
  1. FOSAMAX [Suspect]
     Indication: OSTEOPOROSIS
     Dosage: 70 MG/WKY/PO
     Route: 048
     Dates: start: 20060501
  2. CADUET [Concomitant]
  3. NORVASC [Concomitant]
  4. PLAVIX [Concomitant]
  5. TRICOR [Concomitant]

REACTIONS (3)
  - DIVERTICULUM [None]
  - OESOPHAGEAL PERFORATION [None]
  - RENAL CYST [None]
